FAERS Safety Report 5949392-2 (Version None)
Quarter: 2008Q4

REPORT INFORMATION
  Report Type: 
  Country: None (occurrence: None)
  Receive Date: 20081112
  Receipt Date: 20081030
  Transmission Date: 20090506
  Serious: Yes (Other)
  Sender: FDA-Public Use
  Company Number: PHHY2008GB23329

PATIENT
  Sex: Male
  Weight: 75 kg

DRUGS (10)
  1. CLOZARIL [Suspect]
     Indication: SCHIZOPHRENIA
     Dosage: 25MG BD
     Dates: end: 20080930
  2. CLOZARIL [Suspect]
     Dosage: 62.5MG
     Dates: start: 20080929
  3. ALENDRONATE SODIUM [Concomitant]
     Indication: OSTEOPOROSIS
     Dosage: 70 MG/WEEK
     Route: 048
  4. TEMAZEPAM [Concomitant]
     Indication: SLEEP DISORDER
     Dosage: 20 MG NOCTE
     Route: 048
  5. SIMVASTATIN [Concomitant]
     Indication: BLOOD CHOLESTEROL
     Dosage: 20 MG DAILY
     Route: 048
  6. CALCICHEW [Concomitant]
  7. ACETAMINOPHEN [Concomitant]
  8. ASPIRIN [Concomitant]
  9. LORAZEPAM [Concomitant]
     Indication: AGITATION
     Dosage: 1 MG, BID
     Route: 048
  10. RAMIPRINE [Concomitant]
     Indication: BLOOD PRESSURE
     Dosage: 2 MG DAILY

REACTIONS (6)
  - FALL [None]
  - HEAD INJURY [None]
  - HUMERUS FRACTURE [None]
  - HYPOTENSION [None]
  - ORTHOSTATIC HYPOTENSION [None]
  - SOMNOLENCE [None]
